FAERS Safety Report 17392177 (Version 1)
Quarter: 2020Q1

REPORT INFORMATION
  Report Type: Spontaneous
  Country: US (occurrence: US)
  Receive Date: 20200207
  Receipt Date: 20200207
  Transmission Date: 20200409
  Serious: No
  Sender: FDA-Public Use
  Company Number: US-GILEAD-2020-0450195

PATIENT
  Sex: Female

DRUGS (10)
  1. VEMLIDY [Suspect]
     Active Substance: TENOFOVIR ALAFENAMIDE FUMARATE
     Indication: CHRONIC HEPATITIS B
     Dosage: 25 MG, QD
     Route: 048
     Dates: start: 201807
  2. CYCLOBENZAPRINE HYDROCHLORIDE. [Concomitant]
     Active Substance: CYCLOBENZAPRINE HYDROCHLORIDE
  3. VITAMINS NOS [Concomitant]
     Active Substance: VITAMINS
  4. FLONASE [Concomitant]
     Active Substance: FLUTICASONE PROPIONATE
  5. OMEGA-3 FATTY ACIDS [Concomitant]
     Active Substance: OMEGA-3 FATTY ACIDS
  6. GLUCOSAMINE HCL [Concomitant]
     Active Substance: GLUCOSAMINE
  7. IBUPROFEN. [Concomitant]
     Active Substance: IBUPROFEN
  8. ENTECAVIR. [Concomitant]
     Active Substance: ENTECAVIR
  9. LIDOCAINE 5% EXTRA [Concomitant]
  10. VITAMIN D [VITAMIN D NOS] [Concomitant]
     Active Substance: VITAMIN D NOS

REACTIONS (1)
  - Back pain [Recovered/Resolved with Sequelae]
